FAERS Safety Report 8206159-2 (Version None)
Quarter: 2012Q1

REPORT INFORMATION
  Report Type: 
  Country: None (occurrence: None)
  Receive Date: 20120313
  Receipt Date: 20120305
  Transmission Date: 20120608
  Serious: Yes (Other)
  Sender: FDA-Public Use
  Company Number: US-CELGENEUS-163-21880-12030743

PATIENT
  Sex: Female

DRUGS (1)
  1. REVLIMID [Suspect]
     Indication: MULTIPLE MYELOMA
     Dosage: 5 MILLIGRAM
     Route: 048
     Dates: start: 20110501

REACTIONS (5)
  - DIARRHOEA [None]
  - PSORIASIS [None]
  - OEDEMA PERIPHERAL [None]
  - SQUAMOUS CELL CARCINOMA OF SKIN [None]
  - ERYTHEMA [None]
